FAERS Safety Report 9287912 (Version 2)
Quarter: 2013Q4

REPORT INFORMATION
  Report Type: Spontaneous
  Country: IQ (occurrence: IQ)
  Receive Date: 20130514
  Receipt Date: 20131219
  Transmission Date: 20140711
  Serious: Yes (Other)
  Sender: FDA-Public Use
  Company Number: IQ-MPIJNJ-2013-02608

PATIENT
  Sex: 0

DRUGS (4)
  1. VELCADE [Suspect]
     Indication: PLASMA CELL MYELOMA
     Dosage: 1.6 MG/M2, UNK
     Route: 042
  2. THALIDOMIDE [Concomitant]
     Indication: PLASMA CELL MYELOMA
  3. DEXAMETHASONE [Concomitant]
     Indication: PLASMA CELL MYELOMA
  4. ZOMETA [Concomitant]

REACTIONS (2)
  - Guillain-Barre syndrome [Recovering/Resolving]
  - Shock [Unknown]
